FAERS Safety Report 19421828 (Version 4)
Quarter: 2022Q2

REPORT INFORMATION
  Report Type: Report from Study
  Country: US (occurrence: US)
  Receive Date: 20210615
  Receipt Date: 20220610
  Transmission Date: 20220721
  Serious: No
  Sender: FDA-Public Use
  Company Number: US-ACADIA PHARMACEUTICALS INC.-ACA-2021-PIM-001909

PATIENT
  Sex: Male

DRUGS (24)
  1. NUPLAZID [Suspect]
     Active Substance: PIMAVANSERIN TARTRATE
     Indication: Parkinson^s disease
     Dosage: 34 MILLIGRAM, QD AFTER SUPPER
     Route: 048
     Dates: start: 20201230
  2. ASPIRIN [Concomitant]
     Active Substance: ASPIRIN
  3. ATORVASTATIN [Concomitant]
     Active Substance: ATORVASTATIN
  4. CALCITRIOL [Concomitant]
     Active Substance: CALCITRIOL
  5. CARBIDOPA\LEVODOPA [Concomitant]
     Active Substance: CARBIDOPA\LEVODOPA
  6. CLONAZEPAM [Concomitant]
     Active Substance: CLONAZEPAM
  7. FEBUXOSTAT [Concomitant]
     Active Substance: FEBUXOSTAT
  8. FINASTERIDE [Concomitant]
     Active Substance: FINASTERIDE
  9. FUROSEMIDE [Concomitant]
     Active Substance: FUROSEMIDE
  10. HYDROCHLOROTHIAZIDE [Concomitant]
     Active Substance: HYDROCHLOROTHIAZIDE
  11. LORATADINE [Concomitant]
     Active Substance: LORATADINE
  12. FISH OIL [Concomitant]
     Active Substance: FISH OIL
  13. OMEPRAZOLE [Concomitant]
     Active Substance: OMEPRAZOLE
  14. OXYCODONE/APAP [Concomitant]
     Active Substance: ACETAMINOPHEN\OXYCODONE HYDROCHLORIDE
  15. POLYETHYLENE GLYCOLS [Concomitant]
     Active Substance: POLYETHYLENE GLYCOLS
  16. PREGABALIN [Concomitant]
     Active Substance: PREGABALIN
  17. SUMATRIPTAN [Concomitant]
     Active Substance: SUMATRIPTAN
  18. TAMSULOSIN [Concomitant]
     Active Substance: TAMSULOSIN
  19. LINZESS [Concomitant]
     Active Substance: LINACLOTIDE
  20. XTAMPZA ER [Concomitant]
     Active Substance: OXYCODONE
  21. POLYETHYLENE GLYCOL 3350 [Concomitant]
     Active Substance: POLYETHYLENE GLYCOL 3350
  22. OMEGA-3 FATTY ACIDS [Concomitant]
     Active Substance: OMEGA-3 FATTY ACIDS
  23. CHLORHEXIDINE GLUCONATE [Concomitant]
     Active Substance: CHLORHEXIDINE GLUCONATE
  24. ASPIRIN [Concomitant]
     Active Substance: ASPIRIN

REACTIONS (8)
  - Limb discomfort [Unknown]
  - Nightmare [Not Recovered/Not Resolved]
  - Patient elopement [Not Recovered/Not Resolved]
  - Memory impairment [Not Recovered/Not Resolved]
  - Gait disturbance [Unknown]
  - Hallucination [Not Recovered/Not Resolved]
  - Hallucination [Not Recovered/Not Resolved]
  - Hallucination [Not Recovered/Not Resolved]

NARRATIVE: CASE EVENT DATE: 20210101
